FAERS Safety Report 17786182 (Version 4)
Quarter: 2021Q2

REPORT INFORMATION
  Report Type: Spontaneous
  Country: US (occurrence: US)
  Receive Date: 20200514
  Receipt Date: 20210609
  Transmission Date: 20210716
  Serious: Yes (Other)
  Sender: FDA-Public Use
  Company Number: US-GILEAD-2020-0466727

PATIENT
  Age: 51 Year
  Sex: Male
  Weight: 85.26 kg

DRUGS (20)
  1. ATRIPLA [Suspect]
     Active Substance: EFAVIRENZ\EMTRICITABINE\TENOFOVIR DISOPROXIL FUMARATE
     Indication: HIV INFECTION
     Dosage: UNK
     Route: 048
     Dates: start: 2006, end: 20200303
  2. TYLENOL [Concomitant]
     Active Substance: ACETAMINOPHEN
  3. PREDNISONE. [Concomitant]
     Active Substance: PREDNISONE
  4. IBUPROFEN. [Concomitant]
     Active Substance: IBUPROFEN
  5. FUROSEMIDE. [Concomitant]
     Active Substance: FUROSEMIDE
  6. VALACYCLOVIR HCL [Concomitant]
     Active Substance: VALACYCLOVIR HYDROCHLORIDE
  7. BENZONATATE. [Concomitant]
     Active Substance: BENZONATATE
  8. WARFARIN [Concomitant]
     Active Substance: WARFARIN
  9. NORCO [Concomitant]
     Active Substance: ACETAMINOPHEN\HYDROCODONE BITARTRATE
  10. BIKTARVY [Concomitant]
     Active Substance: BICTEGRAVIR SODIUM\EMTRICITABINE\TENOFOVIR ALAFENAMIDE FUMARATE
     Indication: HIV INFECTION
     Route: 065
  11. LASIX [Concomitant]
     Active Substance: FUROSEMIDE
  12. ATRIPLA [Suspect]
     Active Substance: EFAVIRENZ\EMTRICITABINE\TENOFOVIR DISOPROXIL FUMARATE
     Dosage: UNK
     Route: 048
     Dates: start: 2006, end: 20200204
  13. AMOXICILLIN. [Concomitant]
     Active Substance: AMOXICILLIN
  14. XARELTO [Concomitant]
     Active Substance: RIVAROXABAN
  15. AZITHROMYCIN ANHYDROUS. [Concomitant]
     Active Substance: AZITHROMYCIN ANHYDROUS
  16. VITAMIN D2 [Concomitant]
     Active Substance: ERGOCALCIFEROL
  17. CLARITIN?D 12 HOUR [Concomitant]
     Active Substance: LORATADINE\PSEUDOEPHEDRINE SULFATE
  18. PREDNISONE. [Concomitant]
     Active Substance: PREDNISONE
  19. POTASSIUM CHLORIDE. [Concomitant]
     Active Substance: POTASSIUM CHLORIDE
  20. ENOXAPARIN [Concomitant]
     Active Substance: ENOXAPARIN

REACTIONS (6)
  - Fracture [Recovered/Resolved]
  - Loss of personal independence in daily activities [Unknown]
  - Chronic kidney disease [Not Recovered/Not Resolved]
  - Fanconi syndrome acquired [Not Recovered/Not Resolved]
  - Multiple fractures [Recovered/Resolved]
  - Asthenia [Unknown]

NARRATIVE: CASE EVENT DATE: 20170116
